FAERS Safety Report 16744832 (Version 1)
Quarter: 2019Q3

REPORT INFORMATION
  Report Type: Spontaneous
  Country: US (occurrence: US)
  Receive Date: 20190805
  Receipt Date: 20190805
  Transmission Date: 20191005
  Serious: Yes (Other)
  Sender: FDA-Public Use
  Company Number: None

PATIENT
  Age: 81 Year
  Sex: Male

DRUGS (2)
  1. HEPARIN [Suspect]
     Active Substance: HEPARIN SODIUM
  2. HEPARIN [Suspect]
     Active Substance: HEPARIN SODIUM

REACTIONS (3)
  - Heparin-induced thrombocytopenia test positive [None]
  - Thrombocytopenia [None]
  - Agitation [None]
